FAERS Safety Report 10455083 (Version 1)
Quarter: 2014Q3

REPORT INFORMATION
  Report Type: Report from Study
  Country: US (occurrence: US)
  Receive Date: 20140916
  Receipt Date: 20140916
  Transmission Date: 20150326
  Serious: Yes (Other)
  Sender: FDA-Public Use
  Company Number: US-009507513-1409USA005852

PATIENT
  Age: 85 Year

DRUGS (2)
  1. VELCADE [Suspect]
     Active Substance: BORTEZOMIB
     Indication: PLASMA CELL MYELOMA
     Dosage: 1.3 MG/M2,FREQUENCY:DAYS 1, 4, 8, 11 OF 21 DAY CYCLE
     Route: 042
     Dates: start: 20100928, end: 20111019
  2. DECADRON [Suspect]
     Active Substance: DEXAMETHASONE
     Indication: PLASMA CELL MYELOMA
     Dosage: 40 MG, FREQUENCY: DAYS 1, 4, 8, 11 OF 21 DAY CYCLE
     Route: 048
     Dates: start: 20100928, end: 20101019

REACTIONS (1)
  - Rash [Unknown]

NARRATIVE: CASE EVENT DATE: 20101117
